FAERS Safety Report 4759475-0 (Version None)
Quarter: 2005Q3

REPORT INFORMATION
  Report Type: 
  Country: None (occurrence: None)
  Receive Date: 20050831
  Receipt Date: 20050824
  Transmission Date: 20060218
  Serious: No
  Sender: FDA-Public Use
  Company Number: 217143

PATIENT
  Age: 82 Year
  Sex: Male
  Weight: 73.9 kg

DRUGS (1)
  1. AVASTIN [Suspect]
     Indication: COLORECTAL CANCER METASTATIC
     Dosage: 375 MG, Q3W, INTRAVENOUS
     Route: 042
     Dates: start: 20040924, end: 20050805

REACTIONS (2)
  - FALL [None]
  - HIP FRACTURE [None]
